FAERS Safety Report 5728513-0 (Version None)
Quarter: 2008Q2

REPORT INFORMATION
  Report Type: 
  Country: None (occurrence: None)
  Receive Date: 20080506
  Receipt Date: 20080130
  Transmission Date: 20081010
  Serious: No
  Sender: FDA-Public Use
  Company Number: A0706378A

PATIENT
  Age: 55 Year
  Sex: Female

DRUGS (1)
  1. AMOXIL [Suspect]
     Dosage: 2TSP TWICE PER DAY
     Route: 048
     Dates: start: 20080127, end: 20080127

REACTIONS (1)
  - DYSPNOEA [None]
